FAERS Safety Report 7620402-X (Version None)
Quarter: 2011Q3

REPORT INFORMATION
  Report Type: 
  Country: None (occurrence: None)
  Receive Date: 20110719
  Receipt Date: 20110713
  Transmission Date: 20111222
  Serious: Yes (Death)
  Sender: FDA-Public Use
  Company Number: PHHY2009DE11822

PATIENT
  Sex: Female
  Weight: 66 kg

DRUGS (16)
  1. ZOMETA [Suspect]
     Indication: METASTASES TO BONE
     Dosage: 4 MG EVERY 4 WEEKS
     Route: 042
     Dates: start: 20080424, end: 20090213
  2. DELIX PLUS [Concomitant]
     Dosage: 1 DF, QD
  3. RADIOTHERAPY [Concomitant]
     Dates: start: 20080603, end: 20080617
  4. METOPROLOL TARTRATE [Concomitant]
     Dosage: 0.5 DF, BID
  5. ALPHAGAN [Concomitant]
  6. TAXOL [Concomitant]
     Dates: start: 20080414, end: 20080513
  7. MORPHINE [Concomitant]
     Dosage: 10 MG, TID
  8. MIRTAZAPINE [Concomitant]
  9. DURAGESIC-100 [Concomitant]
     Dosage: 75 UG/HR
  10. FASLODEX [Concomitant]
     Dosage: 250 MG
     Dates: start: 20080603, end: 20080923
  11. EPOETIN BETA [Concomitant]
     Dates: start: 20081114
  12. AMLODIPINE [Concomitant]
  13. NAVELBINE [Concomitant]
     Dosage: 42 MG
     Dates: start: 20081013
  14. METOCLOPRAMIDE [Concomitant]
     Dosage: 1 DF, TID
  15. MOVIPREP [Concomitant]
     Dosage: 1 DF, QD
  16. HYDROMORPHONE HCL [Concomitant]

REACTIONS (5)
  - GENERAL PHYSICAL HEALTH DETERIORATION [None]
  - NEOPLASM MALIGNANT [None]
  - NEOPLASM PROGRESSION [None]
  - METASTASES TO SPINE [None]
  - METASTASES TO LIVER [None]
